FAERS Safety Report 9359959 (Version 4)
Quarter: 2014Q2

REPORT INFORMATION
  Report Type: Spontaneous
  Country: US (occurrence: None)
  Receive Date: 20130608
  Receipt Date: 20140410
  Transmission Date: 20141212
  Serious: Yes (Hospitalization)
  Sender: FDA-Public Use
  Company Number: 2013CT000031

PATIENT
  Age: 37 Year
  Sex: Female

DRUGS (3)
  1. KORLYM [Suspect]
     Indication: CUSHING^S SYNDROME
     Dates: start: 20130201, end: 20130302
  2. LASIX [Concomitant]
  3. DIAMOX [Concomitant]

REACTIONS (4)
  - Vaginal haemorrhage [None]
  - Anger [None]
  - Hallucination [None]
  - Drug dose omission [None]
